FAERS Safety Report 6286949-6 (Version None)
Quarter: 2009Q3

REPORT INFORMATION
  Report Type: 
  Country: None (occurrence: None)
  Receive Date: 20090728
  Receipt Date: 20090723
  Transmission Date: 20100115
  Serious: No
  Sender: FDA-Public Use
  Company Number: US-B.I. PHARMACEUTICALS,INC./RIDGEFIELD-2009-BP-08736BP

PATIENT
  Sex: Male
  Weight: 77.1 kg

DRUGS (12)
  1. COMBIVENT [Suspect]
     Dates: start: 20090601, end: 20090623
  2. BROVANA [Suspect]
     Indication: CHRONIC OBSTRUCTIVE PULMONARY DISEASE
     Route: 055
     Dates: start: 20080101
  3. QVAR 40 [Concomitant]
  4. PLAVIX [Concomitant]
  5. LOPRESSOR [Concomitant]
  6. OXAZEPAM [Concomitant]
     Dates: end: 20090601
  7. TENEX [Concomitant]
  8. CRESTOR [Concomitant]
  9. SINGULAIR [Concomitant]
  10. STARLIX [Concomitant]
  11. PRIMIDONE [Concomitant]
  12. FLOMAX [Concomitant]

REACTIONS (4)
  - DRUG INEFFECTIVE [None]
  - DYSPNOEA [None]
  - GAIT DISTURBANCE [None]
  - NERVOUSNESS [None]
